FAERS Safety Report 8559525-X (Version None)
Quarter: 2012Q3

REPORT INFORMATION
  Report Type: 
  Country: None (occurrence: None)
  Receive Date: 20120802
  Receipt Date: 20120723
  Transmission Date: 20120928
  Serious: Yes (Hospitalization)
  Sender: FDA-Public Use
  Company Number: US-VERTEX PHARMACEUTICALS INC.-AE-2012-010971

PATIENT
  Sex: Male

DRUGS (3)
  1. PEGASYS [Concomitant]
     Indication: HEPATITIS C
     Dates: start: 20120601, end: 20120710
  2. RIBAVIRIN [Concomitant]
     Indication: HEPATITIS C
     Dates: start: 20120601, end: 20120710
  3. INCIVEK [Suspect]
     Indication: HEPATITIS C
     Route: 048
     Dates: start: 20120601, end: 20120710

REACTIONS (9)
  - LOSS OF CONSCIOUSNESS [None]
  - DIZZINESS [None]
  - VOMITING [None]
  - DYSPNOEA [None]
  - NAUSEA [None]
  - ANAEMIA [None]
  - HEADACHE [None]
  - VIRAL LOAD INCREASED [None]
  - CHILLS [None]
